FAERS Safety Report 10091264 (Version 1)
Quarter: 2014Q2

REPORT INFORMATION
  Report Type: Spontaneous
  Country: US (occurrence: US)
  Receive Date: 20140421
  Receipt Date: 20140421
  Transmission Date: 20141212
  Serious: No
  Sender: FDA-Public Use
  Company Number: US-GILEAD-2012-0063551

PATIENT
  Sex: Female

DRUGS (2)
  1. LETAIRIS [Suspect]
     Indication: PRODUCT USED FOR UNKNOWN INDICATION
     Dosage: 5 MG, UNK
     Route: 048
     Dates: start: 20090313
  2. LETAIRIS [Suspect]
     Dosage: UNK
     Route: 048

REACTIONS (3)
  - Unevaluable event [Unknown]
  - Dry mouth [Unknown]
  - Dyspnoea [Unknown]
